FAERS Safety Report 5599620-0 (Version None)
Quarter: 2008Q1

REPORT INFORMATION
  Report Type: 
  Country: None (occurrence: None)
  Receive Date: 20080123
  Receipt Date: 20080121
  Transmission Date: 20080703
  Serious: Yes (Hospitalization)
  Sender: FDA-Public Use
  Company Number: FR-ELI_LILLY_AND_COMPANY-FR200801004130

PATIENT
  Sex: Female

DRUGS (2)
  1. ZYPREXA [Suspect]
     Indication: DEPRESSION
     Dosage: 10 MG, 2/D
     Route: 048
     Dates: start: 20071020, end: 20071130
  2. DEROXAT [Concomitant]
     Indication: DEPRESSION
     Dosage: 20 MG, 2/D
     Route: 048
     Dates: start: 20071020

REACTIONS (3)
  - AGRANULOCYTOSIS [None]
  - PHARYNGITIS [None]
  - PYREXIA [None]
